FAERS Safety Report 10073456 (Version 1)
Quarter: 2014Q2

REPORT INFORMATION
  Report Type: Spontaneous
  Country: DE (occurrence: DE)
  Receive Date: 20140411
  Receipt Date: 20140411
  Transmission Date: 20141212
  Serious: Yes (Congenital Anomaly, Other)
  Sender: FDA-Public Use
  Company Number: DE-TEVA-472976GER

PATIENT
  Age: 1 Day
  Sex: Male

DRUGS (3)
  1. LAMOTRIGIN [Suspect]
     Route: 064
  2. ORFIRIL [Suspect]
     Route: 064
  3. FOLS?URE [Concomitant]
     Route: 064

REACTIONS (10)
  - Neonatal respiratory distress syndrome [Recovered/Resolved]
  - Hypotonia neonatal [Unknown]
  - Agitation neonatal [Recovered/Resolved]
  - Atrial septal defect [Unknown]
  - Microphthalmos [Unknown]
  - Dysmorphism [Not Recovered/Not Resolved]
  - Cardiac septal hypertrophy [Unknown]
  - Hypoglycaemia neonatal [Recovered/Resolved]
  - Somnolence [Unknown]
  - Foetal macrosomia [Unknown]
